FAERS Safety Report 7415894-5 (Version None)
Quarter: 2011Q2

REPORT INFORMATION
  Report Type: 
  Country: None (occurrence: None)
  Receive Date: 20110406
  Receipt Date: 20110322
  Transmission Date: 20111010
  Serious: Yes (Hospitalization)
  Sender: FDA-Public Use
  Company Number: 2011MA002752

PATIENT
  Age: 23 Year
  Sex: Male
  Weight: 12.5 kg

DRUGS (1)
  1. PHENOBARBITAL TAB [Suspect]
     Indication: EPILEPSY

REACTIONS (8)
  - RICKETS [None]
  - BLOOD CALCIUM DECREASED [None]
  - PYELONEPHRITIS [None]
  - BLOOD PHOSPHORUS INCREASED [None]
  - VITAMIN D DEFICIENCY [None]
  - INFECTION [None]
  - BLOOD ALKALINE PHOSPHATASE INCREASED [None]
  - PYREXIA [None]
